FAERS Safety Report 21275996 (Version 1)
Quarter: 2022Q3

REPORT INFORMATION
  Report Type: Spontaneous
  Country: US (occurrence: US)
  Receive Date: 20220831
  Receipt Date: 20220831
  Transmission Date: 20221027
  Serious: No
  Sender: FDA-Public Use
  Company Number: US-ABBVIE-22K-163-4303454-00

PATIENT
  Sex: Male
  Weight: 74.910 kg

DRUGS (4)
  1. HUMIRA [Suspect]
     Active Substance: ADALIMUMAB
     Indication: Neurosarcoidosis
     Route: 058
     Dates: start: 202202
  2. METHOTREXATE [Concomitant]
     Active Substance: METHOTREXATE
     Indication: Neurosarcoidosis
  3. LOSARTAN [Concomitant]
     Active Substance: LOSARTAN
     Indication: Blood pressure measurement
  4. CHLORTHALIDONE [Concomitant]
     Active Substance: CHLORTHALIDONE
     Indication: Blood pressure measurement

REACTIONS (3)
  - Off label use [Unknown]
  - Incorrect dose administered [Recovered/Resolved]
  - Device issue [Recovered/Resolved]

NARRATIVE: CASE EVENT DATE: 20220101
